FAERS Safety Report 17456961 (Version 1)
Quarter: 2020Q1

REPORT INFORMATION
  Report Type: Spontaneous
  Country: ES (occurrence: ES)
  Receive Date: 20200225
  Receipt Date: 20200225
  Transmission Date: 20200409
  Serious: Yes (Hospitalization, Other)
  Sender: FDA-Public Use
  Company Number: ES-SA-2020SA044028

PATIENT
  Age: 56 Year
  Sex: Male

DRUGS (1)
  1. CLEXANE [Suspect]
     Active Substance: ENOXAPARIN SODIUM
     Indication: ATRIAL FIBRILLATION
     Dosage: CLEXANE 80 MG SUBCUTANEOUSLY AT 7:00 AM EVERY 24 HOURS
     Route: 058
     Dates: start: 202001

REACTIONS (3)
  - Haematoma [Unknown]
  - Extra dose administered [Unknown]
  - Condition aggravated [Unknown]

NARRATIVE: CASE EVENT DATE: 20200130
